FAERS Safety Report 14641182 (Version 1)
Quarter: 2018Q1

REPORT INFORMATION
  Report Type: Spontaneous
  Country: US (occurrence: US)
  Receive Date: 20180315
  Receipt Date: 20180315
  Transmission Date: 20180509
  Serious: Yes (Hospitalization)
  Sender: FDA-Public Use
  Company Number: US-PFIZER INC-2018102721

PATIENT
  Age: 60 Year
  Sex: Male
  Weight: 77.11 kg

DRUGS (1)
  1. LYRICA [Suspect]
     Active Substance: PREGABALIN
     Indication: ANGIOPATHY
     Dosage: 50MG CAPSULE THREE TIMES DAILY BY MOUTH
     Route: 048
     Dates: start: 2017, end: 20180305

REACTIONS (1)
  - Drug ineffective for unapproved indication [Recovering/Resolving]
